FAERS Safety Report 9306833 (Version 2)
Quarter: 2013Q3

REPORT INFORMATION
  Report Type: Report from Study
  Country: US (occurrence: US)
  Receive Date: 20130523
  Receipt Date: 20130701
  Transmission Date: 20140515
  Serious: Yes (Other)
  Sender: FDA-Public Use
  Company Number: US-US-EMD SERONO, INC.-7212279

PATIENT
  Sex: Female

DRUGS (2)
  1. REBIF [Suspect]
     Indication: MULTIPLE SCLEROSIS
     Route: 058
     Dates: start: 2004
  2. REBIF [Suspect]
     Route: 058
     Dates: start: 20101102, end: 2011

REACTIONS (2)
  - Ovarian cancer stage IV [Recovering/Resolving]
  - Secondary progressive multiple sclerosis [Not Recovered/Not Resolved]
